FAERS Safety Report 4886225-X (Version None)
Quarter: 2006Q1

REPORT INFORMATION
  Report Type: 
  Country: None (occurrence: None)
  Receive Date: 20060118
  Receipt Date: 20060118
  Transmission Date: 20060701
  Serious: Yes (Hospitalization)
  Sender: FDA-Public Use
  Company Number: None

PATIENT
  Sex: Female
  Weight: 89.3586 kg

DRUGS (10)
  1. FASLODEX [Suspect]
     Indication: BREAST CANCER
     Dosage: 250MG; QDW THEN QMO; IM
     Route: 030
     Dates: start: 20051101
  2. FASLODEX [Suspect]
     Indication: BREAST CANCER
     Dosage: 250MG; QDW THEN QMO; IM
     Route: 030
     Dates: start: 20051115
  3. FASLODEX [Suspect]
     Indication: BREAST CANCER
     Dosage: 250MG; QDW THEN QMO; IM
     Route: 030
     Dates: start: 20051129
  4. EXEMESTANE [Suspect]
     Indication: BREAST CANCER
     Dosage: 25MG; QD; ORAL
     Route: 048
     Dates: start: 20051101, end: 20051129
  5. XANAX [Concomitant]
  6. FLEXERIL [Concomitant]
  7. ALTACE [Concomitant]
  8. CYMBALTA [Concomitant]
  9. IBUPROFEN [Concomitant]
  10. CALCIUM GLUCONATE [Concomitant]

REACTIONS (4)
  - BONE LESION [None]
  - CONDITION AGGRAVATED [None]
  - CONFUSIONAL STATE [None]
  - FEBRILE NEUTROPENIA [None]
